FAERS Safety Report 7826933-1 (Version None)
Quarter: 2011Q4

REPORT INFORMATION
  Report Type: 
  Country: None (occurrence: None)
  Receive Date: 20111020
  Receipt Date: 20111010
  Transmission Date: 20120403
  Serious: Yes (Other)
  Sender: FDA-Public Use
  Company Number: SE-JNJFOC-20111004292

PATIENT
  Sex: Female

DRUGS (3)
  1. GERIMAX [Concomitant]
     Indication: PRODUCT USED FOR UNKNOWN INDICATION
     Route: 065
  2. ACETAMINOPHEN [Concomitant]
     Indication: PAIN
     Route: 065
  3. NICORETTE [Suspect]
     Indication: SMOKING CESSATION THERAPY
     Route: 048
     Dates: start: 19941101

REACTIONS (2)
  - DEPENDENCE [None]
  - INCORRECT DRUG ADMINISTRATION DURATION [None]
